FAERS Safety Report 7430656-0 (Version None)
Quarter: 2011Q2

REPORT INFORMATION
  Report Type: 
  Country: None (occurrence: None)
  Receive Date: 20110421
  Receipt Date: 20110407
  Transmission Date: 20111010
  Serious: Yes (Death, Life-Threatening)
  Sender: FDA-Public Use
  Company Number: FR-CELGENEUS-056-C5013-11042387

PATIENT
  Sex: Male

DRUGS (3)
  1. MELPHALAN [Suspect]
     Indication: MULTIPLE MYELOMA
     Route: 065
  2. THALIDOMIDE [Suspect]
     Indication: MULTIPLE MYELOMA
     Route: 048
  3. PREDNISONE [Suspect]
     Indication: MULTIPLE MYELOMA
     Route: 065

REACTIONS (4)
  - DEATH [None]
  - MYELOMA RECURRENCE [None]
  - CONFUSIONAL STATE [None]
  - SEPSIS [None]
